FAERS Safety Report 6111933-2 (Version None)
Quarter: 2009Q1

REPORT INFORMATION
  Report Type: 
  Country: None (occurrence: None)
  Receive Date: 20090311
  Receipt Date: 20090309
  Transmission Date: 20090719
  Serious: Yes (Death)
  Sender: FDA-Public Use
  Company Number: AU-ROXANE LABORATORIES, INC.-2009-RO-00217RO

PATIENT
  Age: 29 Year
  Sex: Female

DRUGS (5)
  1. MORPHINE [Suspect]
     Indication: MIGRAINE
     Route: 030
  2. METOCLOPRAMIDE HYDROCHLORIDE [Suspect]
     Route: 030
  3. PROCHLORPERAZINE [Suspect]
     Route: 030
  4. PROCAINE PENICILLIN G [Concomitant]
     Indication: TONSILLITIS BACTERIAL
     Route: 030
  5. PHENOXYMETHYL PENICILLIN [Concomitant]
     Indication: TONSILLITIS BACTERIAL

REACTIONS (2)
  - DRUG TOXICITY [None]
  - RESPIRATORY DEPRESSION [None]
